FAERS Safety Report 25278719 (Version 1)
Quarter: 2025Q2

REPORT INFORMATION
  Report Type: Report from Study
  Country: US (occurrence: US)
  Receive Date: 20250507
  Receipt Date: 20250507
  Transmission Date: 20250717
  Serious: No
  Sender: ACADIA PHARMACEUTICALS
  Company Number: US-ACADIA PHARMACEUTICALS INC.-ACA-2025-PIM-005128

PATIENT
  Age: 83 Year
  Sex: Female

DRUGS (5)
  1. NUPLAZID [Suspect]
     Active Substance: PIMAVANSERIN TARTRATE
     Indication: Product used for unknown indication
     Dosage: 34 MILLIGRAM, QD
     Route: 048
     Dates: start: 20240906, end: 20250404
  2. BUPROPION [Concomitant]
     Active Substance: BUPROPION
  3. MELATONIN [Concomitant]
     Active Substance: MELATONIN
  4. MIRTAZAPINE [Concomitant]
     Active Substance: MIRTAZAPINE
  5. QUETIAPINE [Concomitant]
     Active Substance: QUETIAPINE

REACTIONS (1)
  - Product use in unapproved indication [Unknown]

NARRATIVE: CASE EVENT DATE: 20240906
